FAERS Safety Report 8919434 (Version 2)
Quarter: 2013Q4

REPORT INFORMATION
  Report Type: Spontaneous
  Country: US (occurrence: US)
  Receive Date: 20121121
  Receipt Date: 20131107
  Transmission Date: 20140711
  Serious: Yes (Other)
  Sender: FDA-Public Use
  Company Number: US-PFIZER INC-2012289928

PATIENT
  Age: 88 Year
  Sex: Female
  Weight: 65.76 kg

DRUGS (3)
  1. LYRICA [Suspect]
     Indication: NEURALGIA
     Dosage: 50 MG, 3X/DAY
  2. LYRICA [Suspect]
     Indication: LIMB DISCOMFORT
  3. LYRICA [Suspect]
     Indication: PAIN

REACTIONS (3)
  - Drug ineffective [Unknown]
  - Dysstasia [Unknown]
  - Abasia [Unknown]
